FAERS Safety Report 9500632 (Version 1)
Quarter: 2013Q1

REPORT INFORMATION
  Report Type: Spontaneous
  Country: US (occurrence: None)
  Receive Date: 20130116
  Receipt Date: 20130116
  Transmission Date: 20140127
  Serious: Yes (Hospitalization, Other)
  Sender: FDA-Public Use
  Company Number: 414347

PATIENT
  Age: 18 Year
  Sex: Female

DRUGS (4)
  1. NIPENT [Suspect]
     Indication: PRODUCT USED FOR UNKNOWN INDICATION
     Dates: start: 20081229, end: 20091214
  2. ZENAPAX [Suspect]
     Indication: GRAFT VERSUS HOST DISEASE
     Dates: start: 20081223
  3. CYCLOSPORINE) [Concomitant]
  4. PREDNISONE [Concomitant]

REACTIONS (3)
  - Diarrhoea [None]
  - Bone marrow failure [None]
  - Acute graft versus host disease in skin [None]
